FAERS Safety Report 5168708-0 (Version None)
Quarter: 2006Q4

REPORT INFORMATION
  Report Type: 
  Country: None (occurrence: None)
  Receive Date: 20061206
  Receipt Date: 20061206
  Transmission Date: 20070319
  Serious: No
  Sender: FDA-Public Use
  Company Number: None

PATIENT
  Age: 60 Year
  Sex: Male
  Weight: 77.1 kg

DRUGS (1)
  1. BEVACIZUMAB [Suspect]

REACTIONS (1)
  - BLOOD PRESSURE INCREASED [None]
